FAERS Safety Report 8156144-4 (Version None)
Quarter: 2012Q1

REPORT INFORMATION
  Report Type: 
  Country: None (occurrence: None)
  Receive Date: 20120222
  Receipt Date: 20120214
  Transmission Date: 20120608
  Serious: Yes (Life-Threatening, Hospitalization)
  Sender: FDA-Public Use
  Company Number: FR-SANOFI-AVENTIS-200813097FR

PATIENT
  Age: 26 Year
  Sex: Female

DRUGS (13)
  1. NAPHAZOLINE HCL [Suspect]
     Indication: SINUSITIS
     Route: 045
     Dates: start: 20080621
  2. ACETAMINOPHEN [Concomitant]
     Indication: HEADACHE
     Route: 048
  3. PREDNISOLONE [Suspect]
     Indication: SINUSITIS
     Route: 048
     Dates: start: 20080621, end: 20080624
  4. KETEK [Suspect]
     Route: 048
     Dates: start: 20080601
  5. PNEUMOREL [Suspect]
     Indication: SINUSITIS
     Route: 048
     Dates: start: 20080621, end: 20080630
  6. SUPRADYN /ARG/ [Suspect]
     Route: 048
     Dates: start: 20080601
  7. IBUPROFEN (ADVIL) [Suspect]
     Route: 048
     Dates: start: 20080601, end: 20080601
  8. EUPHYTOSE [Suspect]
     Route: 048
     Dates: start: 20080630
  9. ACETAMINOPHEN [Concomitant]
     Dosage: WELL TOLERATED
  10. VITAMINS NOS [Suspect]
     Route: 048
     Dates: start: 20080601
  11. NORDETTE-21 [Concomitant]
     Indication: ORAL CONTRACEPTION
     Dosage: DOSE UNIT: 1 U DOSE:1 UNIT(S)
     Route: 048
     Dates: start: 20030101
  12. LEXOMIL [Concomitant]
     Indication: ANXIETY
     Dosage: DOSE UNIT: 6 MG
     Route: 048
     Dates: start: 20050101
  13. PRAZEPAM [Concomitant]
     Indication: ANXIETY
     Dosage: DOSE UNIT: 10 MG
     Route: 048
     Dates: start: 20080420

REACTIONS (3)
  - XEROPHTHALMIA [None]
  - TRICHORRHEXIS [None]
  - STEVENS-JOHNSON SYNDROME [None]
